FAERS Safety Report 9618740 (Version 1)
Quarter: 2013Q4

REPORT INFORMATION
  Report Type: Spontaneous
  Country: FR (occurrence: FR)
  Receive Date: 20131014
  Receipt Date: 20131014
  Transmission Date: 20140711
  Serious: Yes (Hospitalization)
  Sender: FDA-Public Use
  Company Number: FR-ROCHE-1287701

PATIENT
  Age: 65 Year
  Sex: Female

DRUGS (3)
  1. ZELBORAF [Suspect]
     Indication: METASTATIC MALIGNANT MELANOMA
     Dosage: 240 MG
     Route: 048
     Dates: start: 20130909, end: 20130918
  2. GARDENAL [Suspect]
     Indication: PRODUCT USED FOR UNKNOWN INDICATION
     Route: 048
     Dates: start: 201308, end: 20130910
  3. ESIDREX [Concomitant]
     Route: 048
     Dates: start: 201308, end: 20130908

REACTIONS (7)
  - Dermatitis bullous [Recovered/Resolved]
  - Rash maculo-papular [Recovering/Resolving]
  - Face oedema [Recovering/Resolving]
  - Dermatitis exfoliative [Recovering/Resolving]
  - Hyperkeratosis [Not Recovered/Not Resolved]
  - Lymphopenia [Unknown]
  - Hepatocellular injury [Unknown]
